FAERS Safety Report 4594047-2 (Version None)
Quarter: 2005Q1

REPORT INFORMATION
  Report Type: 
  Country: None (occurrence: None)
  Receive Date: 20050218
  Receipt Date: 20050204
  Transmission Date: 20050727
  Serious: Yes (Life-Threatening, Hospitalization)
  Sender: FDA-Public Use
  Company Number: HQWYE134707FEB05

PATIENT
  Age: 66 Year
  Sex: Male

DRUGS (11)
  1. AMIODARONE HCL [Suspect]
     Indication: ATRIAL FIBRILLATION
     Dosage: 200 MG 1 X PER 1 DAY, ORAL
     Route: 048
     Dates: start: 20020101, end: 20041110
  2. SIMVASTATIN [Suspect]
     Indication: PROPHYLAXIS
     Dosage: 40 MG 1 X PER 1 DAY, ORAL
     Route: 048
     Dates: start: 20020101, end: 20041110
  3. ASPIRIN [Concomitant]
  4. BECLOMETHASONE DIPROPIONATE [Concomitant]
  5. BISOPROLOL FUMARATE [Concomitant]
  6. NITROGLYCERIN [Concomitant]
  7. IPRATROPIUM BROMIDE [Concomitant]
  8. ACETAMINOPHEN [Concomitant]
  9. SALBUTAMOL (SALBUTAMOL) [Concomitant]
  10. HYDROCORTISONE [Concomitant]
  11. TRIMETHOPRIM [Concomitant]

REACTIONS (6)
  - CHOLELITHIASIS [None]
  - HEPATITIS [None]
  - JAUNDICE CHOLESTATIC [None]
  - LOWER RESPIRATORY TRACT INFECTION [None]
  - PLEURAL EFFUSION [None]
  - URINARY TRACT INFECTION BACTERIAL [None]
